FAERS Safety Report 16842651 (Version 1)
Quarter: 2019Q3

REPORT INFORMATION
  Report Type: Spontaneous
  Country: US (occurrence: US)
  Receive Date: 20190924
  Receipt Date: 20190924
  Transmission Date: 20191005
  Serious: No
  Sender: FDA-Public Use
  Company Number: US-GLAXOSMITHKLINE-US2019170549

PATIENT
  Age: 74 Year
  Sex: Female

DRUGS (1)
  1. ABREVA [Suspect]
     Active Substance: DOCOSANOL
     Indication: ORAL HERPES
     Dosage: APPLIED ONCE DAILY, QD
     Route: 061
     Dates: start: 201909

REACTIONS (6)
  - Tissue injury [Unknown]
  - Swelling [Recovered/Resolved]
  - Lip erythema [Unknown]
  - Inappropriate schedule of product administration [Unknown]
  - Oral mucosal discolouration [Not Recovered/Not Resolved]
  - Incorrect product administration duration [Unknown]
